FAERS Safety Report 15302420 (Version 1)
Quarter: 2018Q3

REPORT INFORMATION
  Report Type: Spontaneous
  Country: US (occurrence: US)
  Receive Date: 20180821
  Receipt Date: 20180821
  Transmission Date: 20181010
  Serious: No
  Sender: FDA-Public Use
  Company Number: US-INCYTE CORPORATION-2018IN008231

PATIENT

DRUGS (1)
  1. JAKAFI [Suspect]
     Active Substance: RUXOLITINIB
     Indication: BENIGN SOFT TISSUE NEOPLASM
     Dosage: 30 MG, QD
     Route: 048
     Dates: start: 20180202

REACTIONS (3)
  - Off label use [Unknown]
  - Inappropriate schedule of drug administration [Unknown]
  - Headache [Unknown]

NARRATIVE: CASE EVENT DATE: 201807
